FAERS Safety Report 8433197-7 (Version None)
Quarter: 2012Q2

REPORT INFORMATION
  Report Type: 
  Country: None (occurrence: None)
  Receive Date: 20120613
  Receipt Date: 20120509
  Transmission Date: 20120825
  Serious: Yes (Other)
  Sender: FDA-Public Use
  Company Number: BE-GLAXOSMITHKLINE-B0801482A

PATIENT
  Sex: Female
  Weight: 61 kg

DRUGS (2)
  1. ZYBAN [Suspect]
     Indication: EX-TOBACCO USER
     Route: 048
     Dates: start: 20050101, end: 20050101
  2. PROZAC [Suspect]
     Indication: HYPERPHAGIA
     Route: 048
     Dates: start: 19990101, end: 20000101

REACTIONS (3)
  - HOMICIDAL IDEATION [None]
  - DELIRIUM [None]
  - SUICIDAL IDEATION [None]
